FAERS Safety Report 5033307-8 (Version None)
Quarter: 2006Q2

REPORT INFORMATION
  Report Type: 
  Country: None (occurrence: None)
  Receive Date: 20060511
  Receipt Date: 20060410
  Transmission Date: 20061013
  Serious: No
  Sender: FDA-Public Use
  Company Number: 200613468US

PATIENT
  Sex: Female

DRUGS (2)
  1. APIDRA [Suspect]
     Dosage: 3 U QD
     Dates: start: 20060407
  2. KLONOPIN [Concomitant]

REACTIONS (2)
  - ANXIETY [None]
  - BLOOD GLUCOSE INCREASED [None]
